FAERS Safety Report 8477432-8 (Version None)
Quarter: 2012Q2

REPORT INFORMATION
  Report Type: 
  Country: None (occurrence: None)
  Receive Date: 20120629
  Receipt Date: 20120625
  Transmission Date: 20120825
  Serious: Yes (Hospitalization, Other)
  Sender: FDA-Public Use
  Company Number: PHHY2012BR055201

PATIENT
  Sex: Female
  Weight: 114 kg

DRUGS (1)
  1. AMLODIPINE [Suspect]
     Indication: HYPERTENSION
     Dosage: 1 DF (320/5MG) DAILY
     Route: 048

REACTIONS (2)
  - WEIGHT INCREASED [None]
  - CARDIAC DISORDER [None]
